FAERS Safety Report 5383623-5 (Version None)
Quarter: 2007Q3

REPORT INFORMATION
  Report Type: 
  Country: None (occurrence: None)
  Receive Date: 20070706
  Receipt Date: 20070627
  Transmission Date: 20080115
  Serious: Yes (Hospitalization)
  Sender: FDA-Public Use
  Company Number: 6035128

PATIENT
  Age: 85 Year
  Sex: Female

DRUGS (3)
  1. EMCONOR (10 MG, TABLET) (BISOPROLOL FUMARATE) [Suspect]
     Indication: HYPERTENSION
     Dosage: 2.5 MG (2.5 MG, 1 IN 1 ONCE) ORAL
     Route: 048
     Dates: start: 20070304, end: 20070304
  2. DIGOXIN [Suspect]
     Indication: DRUG USE FOR UNKNOWN INDICATION
     Dates: start: 20070304, end: 20070304
  3. WARFARIN SODIUM [Concomitant]

REACTIONS (5)
  - ATRIOVENTRICULAR BLOCK FIRST DEGREE [None]
  - CARDIAC ARREST [None]
  - ORTHOSTATIC INTOLERANCE [None]
  - SICK SINUS SYNDROME [None]
  - SINUS ARREST [None]
